FAERS Safety Report 24835978 (Version 5)
Quarter: 2025Q1

REPORT INFORMATION
  Report Type: Spontaneous
  Country: US (occurrence: US)
  Receive Date: 20250113
  Receipt Date: 20250214
  Transmission Date: 20250409
  Serious: Yes (Other)
  Sender: BIOVITRUM
  Company Number: US-BIOVITRUM-2025-US-000371

PATIENT
  Age: 78 Year
  Sex: Female

DRUGS (2)
  1. VONJO [Suspect]
     Active Substance: PACRITINIB
     Indication: Myelofibrosis
     Route: 048
     Dates: start: 20241228
  2. OXYCODONE [Suspect]
     Active Substance: OXYCODONE
     Indication: Arthralgia

REACTIONS (8)
  - Arthralgia [Unknown]
  - White blood cell count decreased [Unknown]
  - Diarrhoea [Recovering/Resolving]
  - Platelet count abnormal [Unknown]
  - Product dose omission issue [Unknown]
  - Platelet count decreased [Unknown]
  - Product distribution issue [Unknown]
  - Drug ineffective [Unknown]
